FAERS Safety Report 9825142 (Version 1)
Quarter: 2013Q4

REPORT INFORMATION
  Report Type: Spontaneous
  Country: US (occurrence: None)
  Receive Date: 20131028
  Receipt Date: 20131028
  Transmission Date: 20140711
  Serious: Yes (Other)
  Sender: FDA-Public Use
  Company Number: 2013US001124

PATIENT
  Age: 43 Year
  Sex: Female
  Weight: 56.2 kg

DRUGS (6)
  1. ICLUSIG (PONATINIB) TABLET, 45MG [Suspect]
     Indication: CHRONIC MYELOID LEUKAEMIA
     Dosage: 45 MG, QD, ORAL
     Route: 048
     Dates: start: 20130204
  2. PROZAC (FLUOXETINE HYDROCHLORIDE) [Concomitant]
  3. XANAX (ALPRAZOLAM) [Concomitant]
  4. IRON (IRON) [Concomitant]
  5. POTASSIUM (POTASSIUM) [Concomitant]
  6. NORVASC (AMLODIPINE BESILATE) [Concomitant]

REACTIONS (6)
  - Somnolence [None]
  - Neck pain [None]
  - Back pain [None]
  - Arthralgia [None]
  - Weight decreased [None]
  - Stomatitis [None]
